FAERS Safety Report 6894792-X (Version None)
Quarter: 2010Q3

REPORT INFORMATION
  Report Type: 
  Country: None (occurrence: None)
  Receive Date: 20100802
  Receipt Date: 20100723
  Transmission Date: 20110219
  Serious: Yes (Other)
  Sender: FDA-Public Use
  Company Number: US-AMGEN-QUU410004

PATIENT
  Sex: Female

DRUGS (7)
  1. NEULASTA [Suspect]
     Indication: CHEMOTHERAPY
     Route: 065
     Dates: start: 20100429
  2. BENADRYL [Concomitant]
  3. TAXOTERE [Concomitant]
  4. CYTOXAN [Concomitant]
  5. PREDNISONE [Concomitant]
  6. UNSPECIFIED ANTIEMETIC [Concomitant]
  7. CLARITIN [Concomitant]

REACTIONS (11)
  - ABDOMINAL PAIN UPPER [None]
  - BONE PAIN [None]
  - HEART RATE INCREASED [None]
  - LIP SWELLING [None]
  - MALAISE [None]
  - ORAL PAIN [None]
  - ORAL PRURITUS [None]
  - OROPHARYNGEAL PAIN [None]
  - PARAESTHESIA ORAL [None]
  - SWELLING FACE [None]
  - THROAT TIGHTNESS [None]
